FAERS Safety Report 5145183-3 (Version None)
Quarter: 2006Q4

REPORT INFORMATION
  Report Type: 
  Country: None (occurrence: None)
  Receive Date: 20061107
  Receipt Date: 20061026
  Transmission Date: 20070319
  Serious: Yes (Other)
  Sender: FDA-Public Use
  Company Number: JP-JNJFOC-20061006792

PATIENT
  Sex: Female
  Weight: 50 kg

DRUGS (10)
  1. BLINDED; INFLIXIMAB, RECOMBINANT [Suspect]
     Indication: COLITIS ULCERATIVE
     Route: 042
  2. PLACEBO [Suspect]
     Indication: COLITIS ULCERATIVE
     Route: 042
  3. PENTASA [Concomitant]
     Indication: COLITIS ULCERATIVE
     Dosage: STARTED BEFORE 16-AUG-2006
     Route: 048
  4. PREDONINE [Concomitant]
     Indication: COLITIS ULCERATIVE
     Dosage: STARTED BEFORE 16-AUG-2006
     Route: 048
  5. LAC B [Concomitant]
     Indication: COLITIS ULCERATIVE
     Dosage: STARTED BEFORE 16-AUG-2006
     Route: 048
  6. GASTROM [Concomitant]
     Indication: GASTROINTESTINAL DISORDER THERAPY
     Dosage: STARTED BEFORE 16-AUG-2006
     Route: 048
  7. LANSOPRAZOLE [Concomitant]
     Indication: GASTROINTESTINAL DISORDER THERAPY
     Dosage: STARTED BEFORE 16-AUG-2006
     Route: 048
  8. ACTONEL [Concomitant]
     Indication: OSTEOPOROSIS
     Dosage: STARTED BEFORE 16-AUG-2006
     Route: 048
  9. ALFAROL [Concomitant]
     Indication: OSTEOPOROSIS
     Dosage: STARTED BEFORE 16-AUG-2006
     Route: 048
  10. ISCOTIN [Concomitant]
     Indication: ANTIBIOTIC PROPHYLAXIS
     Dosage: STARTED BEFORE 13-SEP-2006
     Route: 048

REACTIONS (4)
  - ARTHRALGIA [None]
  - MALAISE [None]
  - MYALGIA [None]
  - RASH [None]
